FAERS Safety Report 7710027-X (Version None)
Quarter: 2011Q3

REPORT INFORMATION
  Report Type: 
  Country: None (occurrence: None)
  Receive Date: 20110825
  Receipt Date: 20110813
  Transmission Date: 20111222
  Serious: Yes (Hospitalization)
  Sender: FDA-Public Use
  Company Number: PHHY2011BR73559

PATIENT
  Sex: Female

DRUGS (4)
  1. DIOVAN [Suspect]
     Indication: HYPERTENSION
     Dosage: 1 DF, 300 MG A DAY
     Dates: start: 20100101
  2. RASILEZ HCT [Suspect]
     Dosage: UNK UKN, UNK
  3. CYMBALTA [Suspect]
     Dosage: UNK UKN, UNK
  4. CRESTOR [Suspect]
     Dosage: UNK UKN, UNK

REACTIONS (2)
  - ELECTROLYTE IMBALANCE [None]
  - RESPIRATORY ACIDOSIS [None]
